FAERS Safety Report 5195895-0 (Version None)
Quarter: 2007Q1

REPORT INFORMATION
  Report Type: 
  Country: None (occurrence: None)
  Receive Date: 20070102
  Receipt Date: 20061228
  Transmission Date: 20070707
  Serious: Yes (Other)
  Sender: FDA-Public Use
  Company Number: DE-GLAXOSMITHKLINE-D0051388A

PATIENT
  Age: 51 Year
  Sex: Female
  Weight: 60 kg

DRUGS (2)
  1. LAMICTAL [Suspect]
     Dosage: 25MG TWICE PER DAY
     Route: 048
     Dates: start: 20060908, end: 20060929
  2. TOPAMAX [Concomitant]
     Dosage: 225MG PER DAY
     Route: 048
     Dates: start: 20040101

REACTIONS (3)
  - APHTHOUS STOMATITIS [None]
  - STOMATITIS [None]
  - THROMBOCYTOPENIA [None]
